FAERS Safety Report 12598904 (Version 1)
Quarter: 2016Q3

REPORT INFORMATION
  Report Type: Spontaneous
  Country: HR (occurrence: HR)
  Receive Date: 20160727
  Receipt Date: 20160727
  Transmission Date: 20161109
  Serious: Yes (Other)
  Sender: FDA-Public Use
  Company Number: HR-TEVA-678369ACC

PATIENT
  Age: 14 Year
  Sex: Female

DRUGS (1)
  1. PRAXITEN 15 [Suspect]
     Active Substance: OXAZEPAM
     Route: 048
     Dates: start: 20160127

REACTIONS (3)
  - Intentional overdose [Unknown]
  - Somnolence [Unknown]
  - Suicide attempt [Unknown]

NARRATIVE: CASE EVENT DATE: 20160127
